FAERS Safety Report 25747315 (Version 1)
Quarter: 2025Q3

REPORT INFORMATION
  Report Type: Spontaneous
  Country: US (occurrence: US)
  Receive Date: 20250901
  Receipt Date: 20250901
  Transmission Date: 20251020
  Serious: No
  Sender: TAKEDA
  Company Number: US-TAKEDA-2022TUS003439

PATIENT
  Sex: Female

DRUGS (7)
  1. ENTYVIO [Suspect]
     Active Substance: VEDOLIZUMAB
     Indication: Crohn^s disease
  2. ENTYVIO [Suspect]
     Active Substance: VEDOLIZUMAB
     Indication: Juvenile idiopathic arthritis
  3. ACTEMRA [Concomitant]
     Active Substance: TOCILIZUMAB
  4. NAPROXEN [Concomitant]
     Active Substance: NAPROXEN
  5. METHOTREXATE SODIUM [Concomitant]
     Active Substance: METHOTREXATE SODIUM
  6. LEXAPRO [Concomitant]
     Active Substance: ESCITALOPRAM OXALATE
  7. FOLIC ACID [Concomitant]
     Active Substance: FOLIC ACID

REACTIONS (5)
  - Asthenia [Unknown]
  - Gait disturbance [Unknown]
  - Hypersensitivity [Unknown]
  - Arthralgia [Unknown]
  - Fatigue [Unknown]
